FAERS Safety Report 7542216-1 (Version None)
Quarter: 2011Q2

REPORT INFORMATION
  Report Type: 
  Country: None (occurrence: None)
  Receive Date: 20110606
  Receipt Date: 20110523
  Transmission Date: 20111010
  Serious: Yes (Death, Other)
  Sender: FDA-Public Use
  Company Number: 2011MA006516

PATIENT
  Age: 43 Year
  Sex: Male

DRUGS (2)
  1. CLOZARIL [Suspect]
     Indication: SCHIZOPHRENIA
     Dosage: PO
     Route: 048
     Dates: start: 20080204
  2. DIAZEPAM [Suspect]

REACTIONS (4)
  - MULTIPLE DRUG OVERDOSE [None]
  - CIRCULATORY COLLAPSE [None]
  - ALCOHOL USE [None]
  - SUDDEN DEATH [None]
